FAERS Safety Report 4716714-X (Version None)
Quarter: 2005Q3

REPORT INFORMATION
  Report Type: 
  Country: None (occurrence: None)
  Receive Date: 20050719
  Receipt Date: 20050708
  Transmission Date: 20060218
  Serious: Yes (Death)
  Sender: FDA-Public Use
  Company Number: US-SANOFI-SYNTHELABO-A03200502076

PATIENT
  Sex: Female
  Weight: 185.1 kg

DRUGS (7)
  1. ELOXATIN [Suspect]
     Indication: COLON CANCER METASTATIC
     Dosage: 125 MG GIVEN EVERY 29 DAYS
     Route: 042
     Dates: start: 20050629, end: 20050629
  2. AVASTIN [Concomitant]
     Route: 042
  3. ALOXI [Concomitant]
     Route: 042
  4. DECADRON [Concomitant]
     Route: 042
  5. EMEND [Concomitant]
     Route: 048
  6. ACETAMINOPHEN [Concomitant]
     Route: 048
  7. BENADRYL [Concomitant]
     Route: 048

REACTIONS (5)
  - ANAPHYLACTIC REACTION [None]
  - DIZZINESS [None]
  - LOSS OF CONSCIOUSNESS [None]
  - NAUSEA [None]
  - PULSE ABSENT [None]
